FAERS Safety Report 13542925 (Version 3)
Quarter: 2017Q4

REPORT INFORMATION
  Report Type: Spontaneous
  Country: US (occurrence: US)
  Receive Date: 20170513
  Receipt Date: 20171115
  Transmission Date: 20180320
  Serious: No
  Sender: FDA-Public Use
  Company Number: US-ASTRAZENECA-2017SE51162

PATIENT
  Age: 26666 Day
  Sex: Female
  Weight: 90.7 kg

DRUGS (3)
  1. BYETTA [Suspect]
     Active Substance: EXENATIDE
     Indication: DIABETES MELLITUS
     Route: 065
  2. LEVAMIR [Concomitant]
     Indication: DIABETES MELLITUS
     Dosage: 30 UNITS AT NIGHT
  3. LISINOPRIL. [Suspect]
     Active Substance: LISINOPRIL
     Indication: PROPHYLAXIS
     Route: 048

REACTIONS (5)
  - Body height decreased [Unknown]
  - Osteoporosis [Unknown]
  - Product use issue [Unknown]
  - Product quality issue [Unknown]
  - Drug dose omission [Unknown]

NARRATIVE: CASE EVENT DATE: 20170505
